FAERS Safety Report 17018403 (Version 9)
Quarter: 2024Q1

REPORT INFORMATION
  Report Type: Report from Study
  Country: US (occurrence: US)
  Receive Date: 20191111
  Receipt Date: 20240216
  Transmission Date: 20240410
  Serious: Yes (Other)
  Sender: FDA-Public Use
  Company Number: US-AMGEN-USASL2019180135

PATIENT
  Age: 65 Year
  Sex: Female

DRUGS (4)
  1. ENBREL [Suspect]
     Active Substance: ETANERCEPT
     Indication: Rheumatoid arthritis
     Dosage: 50 MILLIGRAM, QWK
     Route: 065
     Dates: start: 20190101, end: 2019
  2. ENBREL [Suspect]
     Active Substance: ETANERCEPT
     Indication: Osteoarthritis
     Dosage: 50 MILLIGRAM, QWK
     Route: 065
     Dates: start: 202003
  3. ENBREL [Suspect]
     Active Substance: ETANERCEPT
     Dosage: 50 MILLIGRAM, QWK
     Route: 065
  4. ENBREL [Suspect]
     Active Substance: ETANERCEPT
     Dosage: 50 MILLIGRAM, QWK
     Route: 065

REACTIONS (14)
  - Breast cancer [Recovering/Resolving]
  - Breast abscess [Unknown]
  - Therapeutic product effect decreased [Unknown]
  - Accidental exposure to product [Unknown]
  - Device use error [Unknown]
  - Cyst [Not Recovered/Not Resolved]
  - Skin laceration [Unknown]
  - Abscess limb [Unknown]
  - Product use issue [Unknown]
  - Glycosylated haemoglobin increased [Recovered/Resolved]
  - Memory impairment [Not Recovered/Not Resolved]
  - Slow speech [Unknown]
  - Thinking abnormal [Unknown]
  - Visual acuity reduced [Unknown]

NARRATIVE: CASE EVENT DATE: 20190101
